FAERS Safety Report 9547701 (Version 1)
Quarter: 2013Q2

REPORT INFORMATION
  Report Type: Spontaneous
  Country: US (occurrence: None)
  Receive Date: 20130606
  Receipt Date: 20130606
  Transmission Date: 20140414
  Serious: Yes (Hospitalization)
  Sender: FDA-Public Use
  Company Number: 163-POMAL-13032882

PATIENT
  Age: 48 Year
  Sex: Female

DRUGS (7)
  1. POMALYST [Suspect]
     Indication: PLASMA CELL MYELOMA
  2. ACYCLOVIRA [Concomitant]
  3. ASPIRIN [Concomitant]
  4. ATROPINE [Concomitant]
  5. BALSALAZIDE DISODIUM [Concomitant]
  6. FOLIC ACID [Concomitant]
  7. OXYCONTIN [Concomitant]

REACTIONS (2)
  - Full blood count decreased [None]
  - Epistaxis [None]
